FAERS Safety Report 24198681 (Version 6)
Quarter: 2025Q1

REPORT INFORMATION
  Report Type: Spontaneous
  Country: US (occurrence: US)
  Receive Date: 20240812
  Receipt Date: 20250113
  Transmission Date: 20250408
  Serious: No
  Sender: NOVARTIS
  Company Number: US-002147023-NVSC2024US162615

PATIENT
  Sex: Female
  Weight: 111 kg

DRUGS (2)
  1. SCEMBLIX [Suspect]
     Active Substance: ASCIMINIB HYDROCHLORIDE
     Indication: Chronic myeloid leukaemia
     Dosage: 80 MG, QD
     Route: 048
     Dates: start: 202406
  2. SCEMBLIX [Suspect]
     Active Substance: ASCIMINIB HYDROCHLORIDE
     Indication: Philadelphia chromosome positive
     Dosage: 80 MG, QD
     Route: 048

REACTIONS (25)
  - Headache [Unknown]
  - Diarrhoea [Unknown]
  - Fatigue [Unknown]
  - Memory impairment [Unknown]
  - Sleep disorder [Unknown]
  - Lid sulcus deepened [Unknown]
  - Eye pruritus [Unknown]
  - Eye contusion [Unknown]
  - Thirst [Unknown]
  - Abdominal discomfort [Recovering/Resolving]
  - Hyperhidrosis [Recovering/Resolving]
  - Acne [Unknown]
  - Alopecia [Unknown]
  - Contusion [Unknown]
  - Oral pain [Unknown]
  - Arthralgia [Unknown]
  - Dyspepsia [Unknown]
  - Rash [Unknown]
  - Product administration error [Recovering/Resolving]
  - Infection [Unknown]
  - Vision blurred [Unknown]
  - Ear disorder [Unknown]
  - Urinary tract infection [Unknown]
  - Loose tooth [Unknown]
  - Dysphonia [Unknown]
